FAERS Safety Report 5972940-3 (Version None)
Quarter: 2008Q4

REPORT INFORMATION
  Report Type: 
  Country: None (occurrence: None)
  Receive Date: 20081201
  Receipt Date: 20081120
  Transmission Date: 20090506
  Serious: Yes (Hospitalization, Other)
  Sender: FDA-Public Use
  Company Number: PHHY2008GB15339

PATIENT
  Age: 52 Year
  Sex: Female

DRUGS (12)
  1. GLEEVEC [Suspect]
     Indication: CHRONIC MYELOID LEUKAEMIA
     Dosage: 400 MG, QD
     Route: 048
     Dates: start: 20070623, end: 20070904
  2. ANASTROZOLE [Concomitant]
     Indication: BREAST CANCER
     Dosage: 1 MG, QD
  3. SOLIFENACIN [Concomitant]
     Indication: URINARY INCONTINENCE
     Dosage: 5 MG, QD
  4. OMEPRAZOLE [Concomitant]
     Dosage: 40 MG, QD
  5. PREDNISOLONE [Concomitant]
     Indication: CHRONIC OBSTRUCTIVE PULMONARY DISEASE
     Dosage: 10 MG, QD
  6. AMITRIPTYLINE HCL [Concomitant]
     Dosage: 50 MG, QD
  7. DILTIAZEM HCL [Concomitant]
  8. CLOPIDOGREL [Concomitant]
  9. ISOSORBIDE MONONITRATE [Concomitant]
  10. TRAMADOL HCL [Concomitant]
  11. ALBUTEROL SULFATE [Concomitant]
  12. TIOTROPIUM [Concomitant]

REACTIONS (6)
  - CHRONIC OBSTRUCTIVE PULMONARY DISEASE [None]
  - HEPATIC NECROSIS [None]
  - HEPATITIS [None]
  - HEPATOCELLULAR INJURY [None]
  - LIVER FUNCTION TEST ABNORMAL [None]
  - RESPIRATORY DISORDER [None]
